FAERS Safety Report 5885126-8 (Version None)
Quarter: 2008Q3

REPORT INFORMATION
  Report Type: 
  Country: None (occurrence: None)
  Receive Date: 20080916
  Receipt Date: 20080912
  Transmission Date: 20090109
  Serious: Yes (Death, Hospitalization)
  Sender: FDA-Public Use
  Company Number: GB-MERCK-0802GBR00036

PATIENT
  Age: 69 Year
  Sex: Male

DRUGS (4)
  1. CRIXIVAN [Suspect]
     Route: 048
  2. NEVIRAPINE [Concomitant]
     Route: 065
  3. STAVUDINE [Concomitant]
     Route: 065
  4. RITONAVIR [Concomitant]
     Route: 065

REACTIONS (3)
  - MALIGNANT MELANOMA [None]
  - METASTASES TO LYMPH NODES [None]
  - METASTASES TO SKIN [None]
